FAERS Safety Report 5719647-5 (Version None)
Quarter: 2008Q2

REPORT INFORMATION
  Report Type: 
  Country: None (occurrence: None)
  Receive Date: 20080423
  Receipt Date: 20070412
  Transmission Date: 20081010
  Serious: Yes (Hospitalization)
  Sender: FDA-Public Use
  Company Number: 239088

PATIENT
  Age: 69 Year
  Sex: Female
  Weight: 87.5 kg

DRUGS (8)
  1. AVASTIN [Suspect]
     Indication: COLON CANCER METASTATIC
     Dosage: 5 MG/KG, Q2W, INTRAVENOUS
     Route: 042
     Dates: start: 20050913
  2. NORVASC [Concomitant]
  3. GABAPENTIN [Concomitant]
  4. LASIX [Concomitant]
  5. GLUCOPHAGE [Concomitant]
  6. PREVACID [Concomitant]
  7. RESTORIL [Concomitant]
  8. LORTAB [Concomitant]

REACTIONS (1)
  - HAEMOPTYSIS [None]
